FAERS Safety Report 8131193-0 (Version None)
Quarter: 2012Q1

REPORT INFORMATION
  Report Type: 
  Country: None (occurrence: None)
  Receive Date: 20120213
  Receipt Date: 20120202
  Transmission Date: 20120608
  Serious: Yes (Other)
  Sender: FDA-Public Use
  Company Number: CA-JNJFOC-20120201866

PATIENT
  Sex: Female

DRUGS (5)
  1. NUVARING [Concomitant]
     Route: 065
  2. REMICADE [Suspect]
     Indication: CROHN'S DISEASE
     Dosage: HAD 5 INFUSIONS TILL PRESENT
     Route: 042
  3. FENTANYL CITRATE [Concomitant]
     Route: 065
  4. CANNABIS [Concomitant]
     Route: 065
  5. REMICADE [Suspect]
     Indication: COLITIS ULCERATIVE
     Dosage: HAD 5 INFUSIONS TILL PRESENT
     Route: 042

REACTIONS (1)
  - PALPITATIONS [None]
